FAERS Safety Report 20107667 (Version 1)
Quarter: 2021Q4

REPORT INFORMATION
  Report Type: Spontaneous
  Country: US (occurrence: US)
  Receive Date: 20211124
  Receipt Date: 20211124
  Transmission Date: 20220303
  Serious: Yes (Other)
  Sender: FDA-Public Use
  Company Number: US-GLAXOSMITHKLINE-USCH2021083032

PATIENT
  Age: 65 Year
  Sex: Female

DRUGS (1)
  1. ROBITUSSIN MAXIMUM STRENGTH COUGH PLUS CHEST CONGESTION DM [Suspect]
     Active Substance: DEXTROMETHORPHAN HYDROBROMIDE\GUAIFENESIN
     Indication: Hypersensitivity
     Dosage: UNK, QD (AT NIGHT)

REACTIONS (3)
  - Drug dependence [Unknown]
  - Hypertension [Unknown]
  - Product use in unapproved indication [Unknown]
